FAERS Safety Report 18360652 (Version 1)
Quarter: 2020Q4

REPORT INFORMATION
  Report Type: Spontaneous
  Country: US (occurrence: US)
  Receive Date: 20201008
  Receipt Date: 20201008
  Transmission Date: 20210114
  Serious: No
  Sender: FDA-Public Use
  Company Number: US-ROMARKLABS-2019-US-000214

PATIENT
  Age: 76 Year
  Sex: Female

DRUGS (2)
  1. ALINIA [Suspect]
     Active Substance: NITAZOXANIDE
     Indication: PARASITIC GASTROENTERITIS
     Dosage: 1 TABLET BY MOUTH TWICE DAILY
     Route: 048
     Dates: start: 20191003, end: 20191009
  2. XANAX [Concomitant]
     Active Substance: ALPRAZOLAM
     Indication: ANXIETY

REACTIONS (4)
  - Diarrhoea [Unknown]
  - Abdominal pain [Recovered/Resolved]
  - Nausea [Unknown]
  - Gastrointestinal pain [Unknown]

NARRATIVE: CASE EVENT DATE: 20191003
